FAERS Safety Report 6572384-X (Version None)
Quarter: 2010Q1

REPORT INFORMATION
  Report Type: 
  Country: None (occurrence: None)
  Receive Date: 20100205
  Receipt Date: 20100201
  Transmission Date: 20100710
  Serious: Yes (Other)
  Sender: FDA-Public Use
  Company Number: DE-BRISTOL-MYERS SQUIBB COMPANY-14958342

PATIENT
  Sex: Male

DRUGS (3)
  1. VIDEX [Suspect]
     Dosage: TAKEN FOR MANY YEARS DISCONTINUED IN JAN09 RESTARTED IN SEP09
     Dates: start: 20090901
  2. KALETRA [Suspect]
  3. COMBIVIR [Suspect]

REACTIONS (3)
  - OPTIC NERVE DISORDER [None]
  - RETINAL DISORDER [None]
  - VISUAL IMPAIRMENT [None]
